FAERS Safety Report 6795804-4 (Version None)
Quarter: 2010Q2

REPORT INFORMATION
  Report Type: 
  Country: None (occurrence: None)
  Receive Date: 20100625
  Receipt Date: 20100615
  Transmission Date: 20101027
  Serious: Yes (Other)
  Sender: FDA-Public Use
  Company Number: A0785040A

PATIENT
  Sex: Female

DRUGS (3)
  1. RYTHMOL SR [Suspect]
     Indication: ATRIAL FIBRILLATION
     Route: 048
     Dates: start: 20070101
  2. ALTACE [Concomitant]
  3. AVAPRO [Concomitant]

REACTIONS (17)
  - BRONCHITIS CHRONIC [None]
  - BUTTERFLY RASH [None]
  - CHRONIC OBSTRUCTIVE PULMONARY DISEASE [None]
  - DEMENTIA [None]
  - EYE PAIN [None]
  - GOITRE [None]
  - HEADACHE [None]
  - HERPES ZOSTER [None]
  - ILL-DEFINED DISORDER [None]
  - LUNG NEOPLASM [None]
  - QUALITY OF LIFE DECREASED [None]
  - RASH MACULAR [None]
  - SINUS DISORDER [None]
  - SKIN IRRITATION [None]
  - SKIN PAPILLOMA [None]
  - SYSTEMIC LUPUS ERYTHEMATOSUS [None]
  - THROAT TIGHTNESS [None]
